FAERS Safety Report 4836845-3 (Version None)
Quarter: 2005Q4

REPORT INFORMATION
  Report Type: 
  Country: None (occurrence: None)
  Receive Date: 20051121
  Receipt Date: 20051112
  Transmission Date: 20060501
  Serious: Yes (Death, Other)
  Sender: FDA-Public Use
  Company Number: 2004046701

PATIENT
  Age: 44 Year
  Sex: Male
  Weight: 55.3 kg

DRUGS (8)
  1. ZIPRASIDONE (CAPS) (ZIPRASIDONE) [Suspect]
     Indication: ABNORMAL BEHAVIOUR
     Dosage: 160 MG (80 MG, 2 IN 1 D), ORAL
     Route: 048
     Dates: start: 20040623, end: 20040709
  2. GABAPENTIN [Suspect]
     Indication: EPILEPSY
     Dosage: 1800 MG (600 MG, 3 IN 1 D), ORAL
     Route: 048
     Dates: start: 20040601, end: 20040701
  3. LAMOTRIGINE [Suspect]
     Indication: EPILEPSY
     Dosage: 300 MG (100 MG, 3 IN 1 D), ORAL
     Route: 048
     Dates: start: 19990101, end: 20040701
  4. RANITIDINE HYDROCHLORIDE [Suspect]
     Indication: ILL-DEFINED DISORDER
     Dosage: (150 MG), ORAL
     Route: 048
     Dates: start: 19980101, end: 20040701
  5. MIDAZOLAM HCL [Suspect]
     Indication: ILL-DEFINED DISORDER
     Dosage: (7.5 MG), ORAL
     Route: 048
     Dates: start: 20031203, end: 20040701
  6. DEXCHLORPHENIRAMINE MALEATE [Suspect]
     Indication: SCRATCH
     Dosage: (, 1 IN 1 D)
     Dates: start: 20040707, end: 20040701
  7. OLANZAPINE [Concomitant]
  8. TOPIRAMATE [Concomitant]

REACTIONS (13)
  - ARRHYTHMIA [None]
  - CEREBRAL HAEMORRHAGE [None]
  - COLLAPSE OF LUNG [None]
  - DIZZINESS [None]
  - ECCHYMOSIS [None]
  - PRURITUS [None]
  - PULMONARY HAEMORRHAGE [None]
  - PULMONARY OEDEMA [None]
  - SCRATCH [None]
  - SKIN LESION [None]
  - SUDDEN DEATH [None]
  - TORSADE DE POINTES [None]
  - VIRAL RASH [None]
